FAERS Safety Report 9990196 (Version 1)
Quarter: 2013Q4

REPORT INFORMATION
  Report Type: Spontaneous
  Country: US (occurrence: None)
  Receive Date: 20131120
  Receipt Date: 20131120
  Transmission Date: 20140711
  Serious: Yes (Hospitalization)
  Sender: FDA-Public Use
  Company Number: US-BIOTEST-T-396/13

PATIENT
  Age: 59 Year
  Sex: Female

DRUGS (2)
  1. BIVIGAM [Suspect]
     Indication: IMMUNODEFICIENCY COMMON VARIABLE
     Route: 041
     Dates: start: 20130805, end: 20130805
  2. BIVIGAM [Suspect]
     Indication: IMMUNODEFICIENCY COMMON VARIABLE
     Route: 041
     Dates: start: 20130827, end: 20130827

REACTIONS (9)
  - Meningitis aseptic [None]
  - Headache [None]
  - Photophobia [None]
  - Migraine [None]
  - Nausea [None]
  - Influenza like illness [None]
  - Weight decreased [None]
  - Vomiting [None]
  - Photophobia [None]
